FAERS Safety Report 18677255 (Version 2)
Quarter: 2021Q1

REPORT INFORMATION
  Report Type: Report from Study
  Country: US (occurrence: US)
  Receive Date: 20201229
  Receipt Date: 20210111
  Transmission Date: 20210419
  Serious: Yes (Hospitalization)
  Sender: FDA-Public Use
  Company Number: US-EXELIXIS-CABO-20036180

PATIENT
  Age: 56 Year
  Sex: Male

DRUGS (1)
  1. CABOMETYX [Suspect]
     Active Substance: CABOZANTINIB S-MALATE
     Indication: RENAL CELL CARCINOMA
     Dosage: 40 MG, QD
     Route: 048
     Dates: start: 202011

REACTIONS (5)
  - Balance disorder [Recovering/Resolving]
  - Hemiparesis [Recovering/Resolving]
  - Head injury [Recovering/Resolving]
  - Cerebral haemorrhage [Recovering/Resolving]
  - Brain neoplasm [Recovering/Resolving]

NARRATIVE: CASE EVENT DATE: 20201220
